FAERS Safety Report 24154120 (Version 1)
Quarter: 2024Q3

REPORT INFORMATION
  Report Type: Other
  Country: US (occurrence: US)
  Receive Date: 20240730
  Receipt Date: 20240730
  Transmission Date: 20241017
  Serious: Yes (Hospitalization)
  Sender: HLS THERAPEUTICS
  Company Number: US-HLS-202400398

PATIENT
  Age: 33 Year
  Sex: Male

DRUGS (2)
  1. CLOZAPINE [Suspect]
     Active Substance: CLOZAPINE
     Indication: Schizophrenia
     Dosage: INCREMENTALLY ELEVATED FROM 25 TO 225 MG/DAY
     Route: 065
  2. CLOZAPINE [Suspect]
     Active Substance: CLOZAPINE
     Indication: Schizophrenia
     Dosage: REDUCED TO 100 MG/ML, ESCALATING TO 150 MG/DAY ON DAY 8, INCREASED TO 200 MG/DAY ON DAY 15, ON DAY 1
     Route: 065

REACTIONS (8)
  - Neutrophil count increased [Unknown]
  - Therapy change [Unknown]
  - Psychotic disorder [Unknown]
  - Hyperhomocysteinaemia [Unknown]
  - Hyperlipidaemia [Unknown]
  - Hyperuricaemia [Unknown]
  - Nasopharyngitis [Recovered/Resolved]
  - White blood cell count increased [Unknown]
